FAERS Safety Report 20339803 (Version 1)
Quarter: 2022Q1

REPORT INFORMATION
  Report Type: Spontaneous
  Country: US (occurrence: US)
  Receive Date: 20220117
  Receipt Date: 20220117
  Transmission Date: 20220423
  Serious: No
  Sender: FDA-Public Use
  Company Number: US-SA-SAC20220111000041

PATIENT
  Age: 40 Year
  Sex: Male

DRUGS (2)
  1. DUPIXENT [Suspect]
     Active Substance: DUPILUMAB
     Indication: Dermatitis atopic
     Dosage: 300 MG, QOW
     Route: 058
     Dates: start: 202110
  2. TRIAMCINOLONE [Concomitant]
     Active Substance: TRIAMCINOLONE

REACTIONS (7)
  - Dermatitis [Unknown]
  - Eczema [Unknown]
  - Periorbital swelling [Recovering/Resolving]
  - Skin weeping [Unknown]
  - Skin fissures [Unknown]
  - Skin exfoliation [Unknown]
  - Dry eye [Unknown]

NARRATIVE: CASE EVENT DATE: 20211001
